FAERS Safety Report 9354373 (Version 1)
Quarter: 2013Q2

REPORT INFORMATION
  Report Type: Spontaneous
  Country: US (occurrence: US)
  Receive Date: 20130618
  Receipt Date: 20130618
  Transmission Date: 20140414
  Serious: No
  Sender: FDA-Public Use
  Company Number: US-009507513-1306USA007224

PATIENT
  Sex: Female

DRUGS (2)
  1. DR. SCHOLLS CORN/CALLUS REMOVER [Suspect]
     Indication: HYPERKERATOSIS
     Dosage: UNK, UNKNOWN
     Route: 061
  2. DR. SCHOLLS CORN/CALLUS REMOVER [Suspect]
     Indication: SKIN PAPILLOMA

REACTIONS (1)
  - Application site exfoliation [Unknown]
